FAERS Safety Report 7687405-0 (Version None)
Quarter: 2011Q3

REPORT INFORMATION
  Report Type: 
  Country: None (occurrence: None)
  Receive Date: 20110816
  Receipt Date: 20110808
  Transmission Date: 20111222
  Serious: Yes (Other)
  Sender: FDA-Public Use
  Company Number: FR-GILEAD-2011-0042686

PATIENT
  Sex: Male

DRUGS (3)
  1. TRUVADA [Suspect]
     Indication: HIV INFECTION CDC CATEGORY A2
     Route: 048
     Dates: start: 20060116, end: 20110414
  2. REYATAZ [Concomitant]
     Indication: HIV INFECTION CDC CATEGORY A2
     Route: 048
     Dates: start: 20050919
  3. NORVIR [Concomitant]
     Indication: HIV INFECTION CDC CATEGORY A2
     Route: 048
     Dates: start: 20050919

REACTIONS (1)
  - RENAL COLIC [None]
